FAERS Safety Report 7561085-7 (Version None)
Quarter: 2011Q2

REPORT INFORMATION
  Report Type: 
  Country: None (occurrence: None)
  Receive Date: 20110620
  Receipt Date: 20110620
  Transmission Date: 20111010
  Serious: Yes (Hospitalization)
  Sender: FDA-Public Use
  Company Number: None

PATIENT
  Age: 2 Month
  Sex: Female

DRUGS (2)
  1. DARAPRIM [Suspect]
     Indication: TOXOPLASMOSIS
     Dosage: 3.6MG DAILY PO
     Route: 048
     Dates: start: 20110601, end: 20110621
  2. DARAPRIM [Suspect]
     Indication: TOXOPLASMOSIS
     Dosage: 3.6MG DAILY PO
     Route: 048
     Dates: start: 20110526

REACTIONS (1)
  - NEUTROPENIA [None]
